FAERS Safety Report 4420390-3 (Version None)
Quarter: 2004Q3

REPORT INFORMATION
  Report Type: 
  Country: None (occurrence: None)
  Receive Date: 20040809
  Receipt Date: 20040218
  Transmission Date: 20050211
  Serious: No
  Sender: FDA-Public Use
  Company Number: US-GLAXOSMITHKLINE-A0498736A

PATIENT
  Sex: Male

DRUGS (1)
  1. PAXIL CR [Suspect]
     Dosage: 37.5MG PER DAY
     Route: 048

REACTIONS (1)
  - EJACULATION DISORDER [None]
